FAERS Safety Report 15324052 (Version 3)
Quarter: 2021Q1

REPORT INFORMATION
  Report Type: Report from Study
  Country: None (occurrence: CA)
  Receive Date: 20180828
  Receipt Date: 20210121
  Transmission Date: 20210419
  Serious: Yes (Hospitalization, Other)
  Sender: FDA-Public Use
  Company Number: CA-ABBVIE-18K-028-2463402-00

PATIENT
  Age: 64 Year
  Sex: Female

DRUGS (1)
  1. HUMIRA [Suspect]
     Active Substance: ADALIMUMAB
     Indication: PSORIATIC ARTHROPATHY
     Route: 058
     Dates: start: 20091212

REACTIONS (17)
  - Musculoskeletal disorder [Not Recovered/Not Resolved]
  - Upper limb fracture [Not Recovered/Not Resolved]
  - Syncope [Unknown]
  - Exposure to extreme temperature [Recovered/Resolved]
  - Loss of personal independence in daily activities [Unknown]
  - Muscular weakness [Not Recovered/Not Resolved]
  - Mobility decreased [Not Recovered/Not Resolved]
  - Accident [Unknown]
  - Concussion [Not Recovered/Not Resolved]
  - Skin discolouration [Unknown]
  - Upper limb fracture [Unknown]
  - Heat stroke [Unknown]
  - Hand fracture [Not Recovered/Not Resolved]
  - Fall [Recovered/Resolved]
  - Mobility decreased [Unknown]
  - Balance disorder [Unknown]
  - Arthralgia [Not Recovered/Not Resolved]

NARRATIVE: CASE EVENT DATE: 2018
